FAERS Safety Report 8834141 (Version 1)
Quarter: 2012Q4

REPORT INFORMATION
  Report Type: 
  Country: BR (occurrence: BR)
  Receive Date: 20121010
  Receipt Date: 20121010
  Transmission Date: 20130627
  Serious: Yes (Other)
  Sender: FDA-Public Use
  Company Number: PHHY2012BR088970

PATIENT
  Sex: Male
  Weight: 79 kg

DRUGS (1)
  1. DIOVAN HCT [Suspect]
     Indication: HYPERTENSION
     Dosage: 1 DF(1 tablet (valsartan 320mg and hydrochlorotiazide 12.5mg) daily)
     Route: 048

REACTIONS (2)
  - Amnesia [Not Recovered/Not Resolved]
  - Blood pressure increased [Not Recovered/Not Resolved]
